FAERS Safety Report 24733781 (Version 1)
Quarter: 2024Q4

REPORT INFORMATION
  Report Type: Spontaneous
  Country: IL (occurrence: None)
  Receive Date: 20241214
  Receipt Date: 20241214
  Transmission Date: 20250114
  Serious: Yes (Other)
  Sender: NATCO PHARMA
  Company Number: IL-NATCOUSA-2024-NATCOUSA-000241

PATIENT
  Age: 73 Year
  Sex: Female

DRUGS (2)
  1. SUNITINIB MALATE [Suspect]
     Active Substance: SUNITINIB MALATE
     Indication: Solitary fibrous tumour
     Dosage: DAILY
     Dates: start: 202309
  2. SUNITINIB MALATE [Suspect]
     Active Substance: SUNITINIB MALATE
     Indication: Solitary fibrous tumour
     Dosage: DAILY
     Dates: start: 202310

REACTIONS (1)
  - Toxicity to various agents [Unknown]
